FAERS Safety Report 20124049 (Version 4)
Quarter: 2022Q1

REPORT INFORMATION
  Report Type: Report from Study
  Country: US (occurrence: US)
  Receive Date: 20211129
  Receipt Date: 20220323
  Transmission Date: 20220424
  Serious: No
  Sender: FDA-Public Use
  Company Number: US-GW PHARMA-202111USGW05636

PATIENT

DRUGS (14)
  1. EPIDIOLEX [Suspect]
     Active Substance: CANNABIDIOL
     Indication: Lennox-Gastaut syndrome
     Dosage: UNK
     Route: 048
     Dates: start: 20190130
  2. EPIDIOLEX [Suspect]
     Active Substance: CANNABIDIOL
     Dosage: 14.2 MG/KG, 400 MILLIGRAM, BID
     Route: 048
     Dates: start: 20200227
  3. CALCIUM CITRATE\CHOLECALCIFEROL [Concomitant]
     Active Substance: CALCIUM CITRATE\CHOLECALCIFEROL
     Indication: Prophylaxis
     Dosage: 600 MILLIGRAM, QD
     Route: 048
     Dates: start: 19950615
  4. CARNITOR [Concomitant]
     Active Substance: LEVOCARNITINE
     Indication: Prophylaxis
     Dosage: 330 MILLIGRAM, BID
     Route: 048
     Dates: start: 20060615
  5. MIRALAX [Concomitant]
     Active Substance: POLYETHYLENE GLYCOL 3350
     Indication: Constipation
     Dosage: 17 GRAM, QD
     Route: 048
     Dates: start: 20130615
  6. DOCUSATE SODIUM [Concomitant]
     Active Substance: DOCUSATE SODIUM
     Indication: Constipation
     Dosage: 100 MILLIGRAM, QD
     Route: 048
     Dates: start: 20000615
  7. CLOBAZAM [Concomitant]
     Active Substance: CLOBAZAM
     Indication: Lennox-Gastaut syndrome
     Dosage: 5 MILLIGRAM, QD
     Route: 048
     Dates: start: 20160615
  8. LEVETIRACETAM [Concomitant]
     Active Substance: LEVETIRACETAM
     Indication: Lennox-Gastaut syndrome
     Dosage: 1500 MILLIGRAM, QD
     Route: 048
     Dates: start: 20060615
  9. DILANTIN [Concomitant]
     Active Substance: PHENYTOIN
     Indication: Lennox-Gastaut syndrome
     Dosage: 100 MILLIGRAM, BID
     Route: 048
     Dates: start: 19850615
  10. DIVALPROEX SODIUM [Concomitant]
     Active Substance: DIVALPROEX SODIUM
     Indication: Lennox-Gastaut syndrome
     Dosage: 2250 MILLIGRAM, QD
     Route: 048
     Dates: start: 19850615
  11. FOLIC ACID [Concomitant]
     Active Substance: FOLIC ACID
     Indication: Prophylaxis
     Dosage: 0.4 MILLIGRAM, QD
     Route: 048
     Dates: start: 20100615
  12. UNITHROID [Concomitant]
     Active Substance: LEVOTHYROXINE SODIUM
     Indication: Hypothyroidism
     Dosage: 1 DOSAGE FORM, QD
     Route: 048
     Dates: start: 20100615, end: 201606
  13. UNITHROID [Concomitant]
     Active Substance: LEVOTHYROXINE SODIUM
     Dosage: 137 DOSAGE FORM, QD
     Route: 048
     Dates: start: 20160615
  14. FERROUS SULFATE ANHYDROUS [Concomitant]
     Active Substance: FERROUS SULFATE ANHYDROUS
     Indication: Prophylaxis
     Dosage: 1 DOSAGE FORM, QD
     Route: 048
     Dates: start: 20100615

REACTIONS (1)
  - Blood prolactin increased [Recovered/Resolved]

NARRATIVE: CASE EVENT DATE: 20211019
